FAERS Safety Report 6690592-4 (Version None)
Quarter: 2010Q2

REPORT INFORMATION
  Report Type: 
  Country: None (occurrence: None)
  Receive Date: 20100421
  Receipt Date: 20100415
  Transmission Date: 20101027
  Serious: Yes (Hospitalization)
  Sender: FDA-Public Use
  Company Number: B0642598A

PATIENT
  Sex: Female

DRUGS (27)
  1. AUGMENTIN '125' [Suspect]
     Indication: DRUG USE FOR UNKNOWN INDICATION
     Dosage: 6G PER DAY
     Route: 042
     Dates: start: 20100219, end: 20100302
  2. TRACRIUM [Suspect]
     Indication: DRUG USE FOR UNKNOWN INDICATION
     Dosage: 200MG PER DAY
     Route: 042
     Dates: start: 20100219, end: 20100219
  3. NIMBEX [Suspect]
     Indication: DRUG USE FOR UNKNOWN INDICATION
     Route: 042
     Dates: start: 20100222, end: 20100224
  4. SUFENTANIL CITRATE [Suspect]
     Indication: DRUG USE FOR UNKNOWN INDICATION
     Route: 042
     Dates: start: 20100219, end: 20100302
  5. ACUPAN [Suspect]
     Indication: DRUG USE FOR UNKNOWN INDICATION
     Route: 042
     Dates: start: 20100220, end: 20100221
  6. HUMALOG [Suspect]
     Indication: DRUG USE FOR UNKNOWN INDICATION
     Route: 058
     Dates: start: 20100219
  7. ATARAX [Suspect]
     Indication: DRUG USE FOR UNKNOWN INDICATION
     Dosage: 60MG PER DAY
     Route: 042
     Dates: start: 20100220, end: 20100220
  8. LOVENOX [Suspect]
     Indication: DRUG USE FOR UNKNOWN INDICATION
     Route: 058
     Dates: start: 20100220, end: 20100226
  9. GENTALLINE [Suspect]
     Indication: DRUG USE FOR UNKNOWN INDICATION
     Dosage: 300MG PER DAY
     Route: 042
     Dates: start: 20100222, end: 20100223
  10. CANCIDAS [Suspect]
     Indication: DRUG USE FOR UNKNOWN INDICATION
     Dosage: 50MG PER DAY
     Route: 042
     Dates: start: 20100222, end: 20100225
  11. VECTARION [Suspect]
     Indication: DRUG USE FOR UNKNOWN INDICATION
     Route: 042
     Dates: start: 20100222, end: 20100224
  12. KETAMINE [Suspect]
     Indication: DRUG USE FOR UNKNOWN INDICATION
     Route: 042
     Dates: start: 20100219, end: 20100219
  13. ACTRAPID [Suspect]
     Indication: DRUG USE FOR UNKNOWN INDICATION
     Route: 065
     Dates: start: 20100219, end: 20100219
  14. ROCURONIUM BROMIDE [Suspect]
     Indication: DRUG USE FOR UNKNOWN INDICATION
     Dosage: 170MG PER DAY
     Route: 042
     Dates: start: 20100219, end: 20100219
  15. OMEPRAZOLE [Suspect]
     Indication: DRUG USE FOR UNKNOWN INDICATION
     Dosage: 40MG PER DAY
     Route: 042
     Dates: start: 20100219, end: 20100302
  16. HYPNOVEL [Suspect]
     Indication: DRUG USE FOR UNKNOWN INDICATION
     Dosage: 1MG PER DAY
     Route: 042
     Dates: start: 20100219, end: 20100219
  17. EPHEDRINE [Suspect]
     Indication: DRUG USE FOR UNKNOWN INDICATION
     Route: 042
     Dates: start: 20100219, end: 20100219
  18. PROPOFOL [Suspect]
     Indication: DRUG USE FOR UNKNOWN INDICATION
     Route: 042
     Dates: start: 20100219, end: 20100302
  19. METFORMIN HCL [Concomitant]
     Dosage: 150MG TWICE PER DAY
     Route: 065
  20. PRAVASTATIN [Concomitant]
     Dosage: 20MG AT NIGHT
     Route: 065
  21. ANAFRANIL [Concomitant]
     Dosage: 75MG TWICE PER DAY
     Route: 065
  22. SERESTA [Concomitant]
     Dosage: 50MG THREE TIMES PER DAY
     Route: 065
  23. LARGACTIL [Concomitant]
     Dosage: 25MG AT NIGHT
     Route: 065
  24. ARTICHOKE [Concomitant]
     Dosage: 30MG AT NIGHT
     Route: 065
  25. TARDYFERON [Concomitant]
     Dosage: 80MG IN THE MORNING
     Route: 065
  26. TAZOCILLINE [Concomitant]
     Route: 065
     Dates: start: 20100227
  27. CASPOFUNGIN [Concomitant]
     Route: 065
     Dates: start: 20100227

REACTIONS (3)
  - ANURIA [None]
  - STEVENS-JOHNSON SYNDROME [None]
  - TOXIC SKIN ERUPTION [None]
